FAERS Safety Report 5993459-X (Version None)
Quarter: 2008Q4

REPORT INFORMATION
  Report Type: 
  Country: None (occurrence: None)
  Receive Date: 20081212
  Receipt Date: 20081208
  Transmission Date: 20090506
  Serious: No
  Sender: FDA-Public Use
  Company Number: US-JNJFOC-20081202345

PATIENT
  Sex: Female
  Weight: 79.38 kg

DRUGS (9)
  1. FENTANYL TRANSDERMAL SYSTEM [Suspect]
     Indication: BACK PAIN
     Route: 062
  2. LIBRIUM [Concomitant]
     Indication: ANXIETY
     Dosage: 1 IN MORNING AND 1 AT NIGHT
     Route: 048
  3. NEXIUM [Concomitant]
     Indication: GASTROOESOPHAGEAL REFLUX DISEASE
     Route: 048
  4. ENALAPRIL MALEATE [Concomitant]
     Indication: HYPERTENSION
     Route: 048
  5. METOPROLOL TARTRATE [Concomitant]
     Indication: HYPERTENSION
     Route: 048
  6. NABUMETONE [Concomitant]
     Indication: ARTHRITIS
     Route: 048
  7. TRIAMTERENE [Concomitant]
     Indication: OEDEMA
     Dosage: 75MG/50 MG 1 DAILY
     Route: 048
  8. TRAMADOL HCL [Concomitant]
     Indication: ARTHRALGIA
     Dosage: 50MG 2 IN MORNING, 2 AT DINNER, 2 AT BEDTIME
     Route: 048
  9. GABITRIL [Concomitant]
     Indication: CONVULSION
     Dosage: 1 IN MORNING AND 1 AT BED TIME
     Route: 048

REACTIONS (2)
  - INAPPROPRIATE SCHEDULE OF DRUG ADMINISTRATION [None]
  - WRONG TECHNIQUE IN DRUG USAGE PROCESS [None]
